FAERS Safety Report 8993057 (Version 2)
Quarter: 2013Q1

REPORT INFORMATION
  Report Type: Spontaneous
  Country: US (occurrence: US)
  Receive Date: 20130102
  Receipt Date: 20130128
  Transmission Date: 20140127
  Serious: Yes (Hospitalization)
  Sender: FDA-Public Use
  Company Number: US-ASTRAZENECA-2012SE95552

PATIENT
  Age: 58 Year
  Sex: Female

DRUGS (2)
  1. SYMBICORT PMDI [Suspect]
     Dosage: 160/4.5 MCG, 2 PUFFS BID
     Route: 055
  2. SYMBICORT PMDI [Suspect]
     Dosage: 160/4.5 MCG, 2 PUFFS BID
     Route: 055

REACTIONS (4)
  - Bronchitis [Unknown]
  - Condition aggravated [Unknown]
  - Cough [Unknown]
  - Drug dose omission [Unknown]
